FAERS Safety Report 14666639 (Version 4)
Quarter: 2018Q3

REPORT INFORMATION
  Report Type: Spontaneous
  Country: US (occurrence: US)
  Receive Date: 20180322
  Receipt Date: 20180720
  Transmission Date: 20181010
  Serious: Yes (Other)
  Sender: FDA-Public Use
  Company Number: US-BRISTOL-MYERS SQUIBB COMPANY-BMS-2018-023000

PATIENT
  Age: 63 Year
  Sex: Female
  Weight: 102.6 kg

DRUGS (7)
  1. ENBREL [Suspect]
     Active Substance: ETANERCEPT
     Indication: RHEUMATOID ARTHRITIS
     Route: 065
  2. METHOTREXATE. [Suspect]
     Active Substance: METHOTREXATE
     Indication: PRODUCT USED FOR UNKNOWN INDICATION
     Dosage: UNK
     Route: 065
     Dates: start: 200101, end: 201504
  3. XELJANZ XR [Suspect]
     Active Substance: TOFACITINIB CITRATE
     Indication: RHEUMATOID ARTHRITIS
     Dosage: 11 MG, QD
     Route: 048
  4. AZATHIOPRINE. [Concomitant]
     Active Substance: AZATHIOPRINE
     Indication: PRODUCT USED FOR UNKNOWN INDICATION
     Dosage: UNK
     Route: 065
     Dates: start: 2017
  5. CIMZIA [Concomitant]
     Active Substance: CERTOLIZUMAB PEGOL
     Indication: PRODUCT USED FOR UNKNOWN INDICATION
     Route: 065
  6. HUMIRA [Suspect]
     Active Substance: ADALIMUMAB
     Indication: RHEUMATOID ARTHRITIS
     Dosage: UNK
     Route: 058
     Dates: start: 2017
  7. ORENCIA [Suspect]
     Active Substance: ABATACEPT
     Indication: RHEUMATOID ARTHRITIS
     Dosage: UNK
     Route: 065
     Dates: start: 2017

REACTIONS (16)
  - Vomiting [Unknown]
  - Generalised oedema [Unknown]
  - Lip disorder [Unknown]
  - Fall [Unknown]
  - Nausea [Unknown]
  - Drug ineffective [Unknown]
  - Asthenia [Unknown]
  - Memory impairment [Unknown]
  - Contraindicated product administered [Unknown]
  - Weight increased [Unknown]
  - Tooth fracture [Unknown]
  - Skin exfoliation [Unknown]
  - Retinal detachment [Unknown]
  - Concussion [Unknown]
  - Facial bones fracture [Unknown]
  - Face injury [Unknown]

NARRATIVE: CASE EVENT DATE: 2012
